FAERS Safety Report 24061851 (Version 1)
Quarter: 2024Q3

REPORT INFORMATION
  Report Type: Report from Study
  Country: CR (occurrence: CR)
  Receive Date: 20240708
  Receipt Date: 20240708
  Transmission Date: 20241017
  Serious: Yes (Other)
  Sender: MYLAN
  Company Number: CR-MYLANLABS-2024M1062412

PATIENT
  Sex: Male

DRUGS (3)
  1. LIPITOR [Suspect]
     Active Substance: ATORVASTATIN CALCIUM
     Indication: Blood cholesterol abnormal
     Dosage: 10 MILLIGRAM, QD
     Route: 048
     Dates: end: 20240612
  2. LIPITOR [Suspect]
     Active Substance: ATORVASTATIN CALCIUM
     Indication: Blood cholesterol abnormal
     Dosage: 20 MILLIGRAM, QD
     Route: 048
  3. LIPITOR [Suspect]
     Active Substance: ATORVASTATIN CALCIUM
     Indication: Blood cholesterol abnormal
     Dosage: 40 MILLIGRAM, QD
     Route: 048

REACTIONS (6)
  - Cerebral infarction [Not Recovered/Not Resolved]
  - Cerebrovascular accident [Not Recovered/Not Resolved]
  - Cerebral small vessel ischaemic disease [Not Recovered/Not Resolved]
  - Mental disorder [Not Recovered/Not Resolved]
  - Confusional state [Not Recovered/Not Resolved]
  - Amnesia [Not Recovered/Not Resolved]
